FAERS Safety Report 20976643 (Version 4)
Quarter: 2022Q3

REPORT INFORMATION
  Report Type: Spontaneous
  Country: US (occurrence: US)
  Receive Date: 20220617
  Receipt Date: 20220922
  Transmission Date: 20221027
  Serious: No
  Sender: FDA-Public Use
  Company Number: US-PFIZER INC-202200840631

PATIENT
  Age: 49 Year
  Sex: Female
  Weight: 61.235 kg

DRUGS (9)
  1. PAXLOVID [Suspect]
     Active Substance: NIRMATRELVIR\RITONAVIR
     Indication: COVID-19 treatment
     Dosage: [PF-07321332 150 MG]/[RITONAVIR 100 MG], 2X/DAY
     Dates: start: 20220530, end: 20220603
  2. THERAFLU ALERGIA [Concomitant]
     Dosage: Q (EVERY) 4 H (HOUR)
     Dates: start: 20220530, end: 20220618
  3. THERAFLU ALERGIA [Concomitant]
     Dosage: UNK
     Dates: start: 20220530, end: 20220617
  4. ALBUTEROL SULFATE [Concomitant]
     Active Substance: ALBUTEROL SULFATE
     Dosage: EVERY 4 HOURS [Q (EVERY) 4 H (HOUR)
     Dates: start: 20220530, end: 20220618
  5. TUSSIN [BUTAMIRATE CITRATE] [Concomitant]
     Dosage: UNK
     Dates: start: 20220601, end: 20220606
  6. MUCINEX [Concomitant]
     Active Substance: GUAIFENESIN
     Dosage: 1-2 Q (EVERY) 6 H (HOUR)
     Dates: start: 20220530, end: 20220620
  7. MUCINEX [Concomitant]
     Active Substance: GUAIFENESIN
     Dosage: UNK
     Dates: start: 20220614, end: 20220617
  8. IBUPROFEN [Concomitant]
     Active Substance: IBUPROFEN
     Dosage: Q (EVERY) 6 H (HOUR)
     Dates: start: 20220615, end: 20220620
  9. THERAFLU NIGHT TIME [Concomitant]
     Dosage: UNK
     Dates: start: 20220530, end: 20220617

REACTIONS (5)
  - COVID-19 [Recovering/Resolving]
  - Disease recurrence [Recovering/Resolving]
  - Dysgeusia [Unknown]
  - Product taste abnormal [Unknown]
  - Asthma [Unknown]

NARRATIVE: CASE EVENT DATE: 20220101
